FAERS Safety Report 13586578 (Version 1)
Quarter: 2017Q2

REPORT INFORMATION
  Report Type: Spontaneous
  Country: US (occurrence: US)
  Receive Date: 20170525
  Receipt Date: 20170525
  Transmission Date: 20170830
  Serious: Yes (Hospitalization)
  Sender: FDA-Public Use
  Company Number: None

PATIENT
  Age: 63 Year
  Sex: Male
  Weight: 87 kg

DRUGS (16)
  1. APIXABAN 5 MG [Suspect]
     Active Substance: APIXABAN
     Indication: JUGULAR VEIN THROMBOSIS
     Route: 048
     Dates: start: 20170517
  2. AMITRIPTYLINE [Concomitant]
     Active Substance: AMITRIPTYLINE
  3. HYDROCODONE-ACETAMINOPHEN [Concomitant]
     Active Substance: ACETAMINOPHEN\HYDROCODONE
  4. BACLOMETHASONE [Concomitant]
  5. BENZONATATE. [Concomitant]
     Active Substance: BENZONATATE
  6. ENALAPRIL [Concomitant]
     Active Substance: ENALAPRIL
  7. TIOTROPIUM [Concomitant]
     Active Substance: TIOTROPIUM
  8. CARVEDILOL. [Concomitant]
     Active Substance: CARVEDILOL
  9. ONDANSETRON [Concomitant]
     Active Substance: ONDANSETRON
  10. ATORVASTATIN [Concomitant]
     Active Substance: ATORVASTATIN
  11. MORPHINE [Concomitant]
     Active Substance: MORPHINE
  12. OMEPRAZOLE. [Concomitant]
     Active Substance: OMEPRAZOLE
  13. ALBUTEROL. [Concomitant]
     Active Substance: ALBUTEROL
  14. INVESTIGATIONAL ASCORBIC ACID [Concomitant]
  15. PROCHLORPERAZINE. [Concomitant]
     Active Substance: PROCHLORPERAZINE
  16. ZOLPIDEM [Concomitant]
     Active Substance: ZOLPIDEM\ZOLPIDEM TARTRATE

REACTIONS (1)
  - Pneumonia [None]

NARRATIVE: CASE EVENT DATE: 20170524
